FAERS Safety Report 16588370 (Version 1)
Quarter: 2019Q3

REPORT INFORMATION
  Report Type: Spontaneous
  Country: US (occurrence: US)
  Receive Date: 20190717
  Receipt Date: 20190717
  Transmission Date: 20191004
  Serious: No
  Sender: FDA-Public Use
  Company Number: US-SA-2019SA192040

PATIENT
  Age: 91 Year
  Sex: Female

DRUGS (2)
  1. GAVISCON [Suspect]
     Active Substance: ALUMINUM HYDROXIDE\MAGNESIUM CARBONATE
     Indication: CONSTIPATION
  2. ALGINIC ACID;ALUMINIUM HYDROXIDE;MAGNESIUM CARBONATE [Suspect]
     Active Substance: ALGINIC ACID\ALUMINUM HYDROXIDE\MAGNESIUM CARBONATE
     Indication: CONSTIPATION
     Route: 048

REACTIONS (2)
  - Off label use [Unknown]
  - Constipation [Unknown]
